FAERS Safety Report 5123417-9 (Version None)
Quarter: 2006Q4

REPORT INFORMATION
  Report Type: 
  Country: None (occurrence: None)
  Receive Date: 20061009
  Receipt Date: 20060927
  Transmission Date: 20070319
  Serious: Yes (Other)
  Sender: FDA-Public Use
  Company Number: FR-GILEAD-2006-0010294

PATIENT
  Age: 36 Year
  Sex: Male

DRUGS (3)
  1. TRUVADA [Suspect]
     Indication: HIV INFECTION
     Route: 048
     Dates: start: 20060701, end: 20060901
  2. TRIFLUCAN [Suspect]
     Indication: OESOPHAGEAL CANDIDIASIS
     Dates: start: 20060821
  3. VIRACEPT [Concomitant]
     Indication: HIV INFECTION
     Route: 048
     Dates: start: 20060701, end: 20060901

REACTIONS (2)
  - JAUNDICE [None]
  - OESOPHAGEAL CANDIDIASIS [None]
